FAERS Safety Report 6412282-5 (Version None)
Quarter: 2009Q4

REPORT INFORMATION
  Report Type: 
  Country: None (occurrence: None)
  Receive Date: 20091023
  Receipt Date: 20091014
  Transmission Date: 20100525
  Serious: Yes (Congenital Anomaly)
  Sender: FDA-Public Use
  Company Number: US-AMGEN-US342343

PATIENT

DRUGS (13)
  1. ENBREL [Suspect]
     Indication: RHEUMATOID ARTHRITIS
     Route: 064
     Dates: start: 20080316, end: 20081212
  2. VITAMIN TAB [Concomitant]
     Route: 064
     Dates: start: 20080501, end: 20081212
  3. CALCIUM [Concomitant]
     Route: 064
     Dates: start: 20080316, end: 20081212
  4. IRON [Concomitant]
     Route: 064
     Dates: start: 20080316, end: 20080916
  5. IRON [Concomitant]
     Route: 064
     Dates: start: 20080917, end: 20081212
  6. FOLIC ACID [Concomitant]
     Route: 064
     Dates: start: 20080316, end: 20081212
  7. FISH OIL [Concomitant]
     Route: 064
     Dates: start: 20080316, end: 20081101
  8. PLAQUENIL [Concomitant]
     Route: 064
     Dates: start: 20080316, end: 20081212
  9. LEVOTHYROXINE SODIUM [Concomitant]
     Route: 064
     Dates: start: 20080316, end: 20081212
  10. ACETAMINOPHEN [Concomitant]
     Route: 064
     Dates: start: 20080316, end: 20081021
  11. ACETAMINOPHEN [Concomitant]
     Route: 062
     Dates: start: 20080316, end: 20081021
  12. INFLUENZA VACCINE [Concomitant]
     Route: 064
     Dates: start: 20081016, end: 20081016
  13. PREDNISONE [Concomitant]
     Route: 064
     Dates: start: 20080316, end: 20080503

REACTIONS (4)
  - ATRIAL SEPTAL DEFECT [None]
  - CONGENITAL MITRAL VALVE INCOMPETENCE [None]
  - HAEMANGIOMA CONGENITAL [None]
  - PULMONARY ARTERY STENOSIS CONGENITAL [None]
